FAERS Safety Report 10590230 (Version 3)
Quarter: 2015Q1

REPORT INFORMATION
  Report Type: Spontaneous
  Country: US (occurrence: US)
  Receive Date: 20141118
  Receipt Date: 20150114
  Transmission Date: 20150720
  Serious: No
  Sender: FDA-Public Use
  Company Number: US-PFIZER INC-2014315367

PATIENT
  Age: 65 Year
  Sex: Male

DRUGS (16)
  1. ASPIRIN. [Concomitant]
     Active Substance: ASPIRIN
     Dosage: 81 MG, DAILY
     Route: 055
  2. BUMETANIDE. [Concomitant]
     Active Substance: BUMETANIDE
     Dosage: 2 MG, 2X/DAY
     Route: 048
  3. NORVASC [Concomitant]
     Active Substance: AMLODIPINE BESYLATE
     Dosage: 5 MG, DAILY
  4. SENNA [Concomitant]
     Active Substance: SENNA LEAF\SENNOSIDES\SENNOSIDES A AND B
     Dosage: UNK, AS NEEDED
  5. ESOMEPRAZOLE [Concomitant]
     Active Substance: ESOMEPRAZOLE
     Dosage: 40 UNK, UNK
  6. WARFARIN [Concomitant]
     Active Substance: WARFARIN
     Dosage: 6 MG, DAILY
  7. TOPROL XL [Concomitant]
     Active Substance: METOPROLOL SUCCINATE
     Dosage: 100 MG, DAILY
  8. AMIODARONE [Concomitant]
     Active Substance: AMIODARONE
     Dosage: 200 MG, DAILY
  9. FERROUS SULFATE [Concomitant]
     Active Substance: FERROUS SULFATE\FERROUS SULFATE, DRIED
     Dosage: 325 UNK, UNK
  10. NIASPAN [Concomitant]
     Active Substance: NIACIN
     Dosage: 500 MG, 1X/DAY (AT BED TIME)
  11. DOCUSATE [Concomitant]
     Active Substance: DOCUSATE
     Dosage: 100 MG, DAILY
  12. LISINOPRIL. [Concomitant]
     Active Substance: LISINOPRIL
     Dosage: 10 MG, DAILY
  13. POTASSIUM [Concomitant]
     Active Substance: POTASSIUM
     Dosage: 40 MEQ, DAILY
  14. PRAVASTATIN [Concomitant]
     Active Substance: PRAVASTATIN\PRAVASTATIN SODIUM
     Dosage: 40 MG, DAILY
  15. ALDACTONE [Suspect]
     Active Substance: SPIRONOLACTONE
     Indication: CARDIAC FAILURE
     Dosage: 25 MG, DAILY
     Route: 048
     Dates: start: 2011, end: 2012
  16. MAGNESIUM OXIDE. [Concomitant]
     Active Substance: MAGNESIUM OXIDE
     Dosage: 800 MG, 2X/DAY
     Route: 048

REACTIONS (2)
  - Drug hypersensitivity [Unknown]
  - Gynaecomastia [Recovering/Resolving]

NARRATIVE: CASE EVENT DATE: 2012
